FAERS Safety Report 9702925 (Version 1)
Quarter: 2013Q4

REPORT INFORMATION
  Report Type: Spontaneous
  Country: US (occurrence: US)
  Receive Date: 20131121
  Receipt Date: 20131121
  Transmission Date: 20140711
  Serious: Yes (Hospitalization, Other)
  Sender: FDA-Public Use
  Company Number: US-TEVA-445763USA

PATIENT
  Age: 41 Year
  Sex: Female

DRUGS (11)
  1. HYDROXYCHLOROQUINE [Suspect]
     Indication: SYSTEMIC LUPUS ERYTHEMATOSUS
     Dosage: SEVERAL MONTHS OF POOR COMPLIANCE; THEN REINITIATED 200MG TWICE DAILY
     Route: 065
  2. HYDROXYCHLOROQUINE [Suspect]
     Indication: SYSTEMIC LUPUS ERYTHEMATOSUS
     Dosage: REINITIATED AFTER SEVERAL MONTHS OF POOR COMPLIANCE
     Route: 048
  3. CALCITRIOL [Concomitant]
     Dosage: SEVERAL MONTHS OF POOR COMPLIANCE
     Route: 048
  4. FERROUS SULFATE [Concomitant]
     Dosage: SEVERAL MONTHS OF POOR COMPLIANCE
     Route: 048
  5. FUROSEMIDE [Concomitant]
     Dosage: 40MG DAILY; SEVERAL MONTHS OF POOR COMPLIANCE
     Route: 048
  6. MULTIVITAMIN [Concomitant]
     Dosage: DF = 1 TABLET; SEVERAL MONTHS OF POOR COMPLIANCE
     Route: 048
  7. MYCOPHENOLIC ACID [Concomitant]
     Dosage: SEVERAL MONTHS OF POOR COMPLIANCE
     Route: 048
  8. NIFEDIPINE [Concomitant]
     Dosage: 90MG DAILY; EXTENDED-RELEASE; SEVERAL MONTHS OF POOR COMPLIANCE
     Route: 048
  9. SODIUM BICARBONATE [Concomitant]
     Dosage: SEVERAL MONTHS OF POOR COMPLIANCE
     Route: 048
  10. CARVEDILOL [Concomitant]
     Dosage: SEVERAL MONTHS OF POOR COMPLIANCE
     Route: 048
  11. PREDNISONE [Concomitant]
     Route: 065

REACTIONS (1)
  - Electrocardiogram QT prolonged [Recovering/Resolving]
